FAERS Safety Report 10102922 (Version 2)
Quarter: 2014Q3

REPORT INFORMATION
  Report Type: Spontaneous
  Country: US (occurrence: US)
  Receive Date: 20140424
  Receipt Date: 20140728
  Transmission Date: 20150326
  Serious: Yes (Hospitalization, Other)
  Sender: FDA-Public Use
  Company Number: US-GILEAD-2014-0100631

PATIENT
  Sex: Female

DRUGS (2)
  1. RIOCIGUAT [Concomitant]
     Active Substance: RIOCIGUAT
  2. LETAIRIS [Suspect]
     Active Substance: AMBRISENTAN
     Indication: PULMONARY ARTERIAL HYPERTENSION
     Dosage: 10 MG, QID
     Route: 065
     Dates: start: 20110214

REACTIONS (1)
  - Pneumonia [Unknown]
